FAERS Safety Report 6230466-6 (Version None)
Quarter: 2009Q2

REPORT INFORMATION
  Report Type: 
  Country: None (occurrence: None)
  Receive Date: 20090611
  Receipt Date: 20090602
  Transmission Date: 20091009
  Serious: Yes (Other)
  Sender: FDA-Public Use
  Company Number: 2009AP002224

PATIENT

DRUGS (1)
  1. ZOLPIDEM TARTRATE [Suspect]
     Dosage: PO
     Route: 048

REACTIONS (2)
  - DRUG ABUSE [None]
  - INCORRECT DOSE ADMINISTERED [None]
